FAERS Safety Report 15308578 (Version 1)
Quarter: 2018Q3

REPORT INFORMATION
  Report Type: Spontaneous
  Country: CA (occurrence: CA)
  Receive Date: 20180822
  Receipt Date: 20180822
  Transmission Date: 20181010
  Serious: Yes (Death)
  Sender: FDA-Public Use
  Company Number: CA-PFIZER INC-2018336021

PATIENT
  Age: 86 Year
  Sex: Male

DRUGS (2)
  1. DIPHENHYDRAMINE. [Concomitant]
     Active Substance: DIPHENHYDRAMINE
     Dosage: UNK
  2. AMIODARONE HCL [Suspect]
     Active Substance: AMIODARONE HYDROCHLORIDE
     Dosage: UNK

REACTIONS (12)
  - Traumatic lung injury [Fatal]
  - Confusional state [Fatal]
  - Impatience [Fatal]
  - Respiratory arrest [Fatal]
  - Asthenia [Fatal]
  - Cardiac arrest [Fatal]
  - Overdose [Fatal]
  - Acute respiratory distress syndrome [Fatal]
  - Fasting [Fatal]
  - Pulmonary oedema [Fatal]
  - Dizziness [Fatal]
  - Pulmonary congestion [Fatal]
